FAERS Safety Report 8317546-6 (Version None)
Quarter: 2012Q2

REPORT INFORMATION
  Report Type: 
  Country: None (occurrence: None)
  Receive Date: 20120427
  Receipt Date: 20120423
  Transmission Date: 20120825
  Serious: Yes (Hospitalization)
  Sender: FDA-Public Use
  Company Number: PHHY2012DE034936

PATIENT
  Age: 66 Year
  Sex: Female

DRUGS (3)
  1. COTRIM [Concomitant]
     Indication: CYSTITIS
     Dosage: UNK
     Dates: start: 20110201
  2. LEVOFLOXACIN [Concomitant]
     Indication: CYSTITIS
     Dosage: UNK
  3. DICLOFENAC [Suspect]
     Indication: BACK PAIN
     Dosage: UNK

REACTIONS (11)
  - LEUKOCYTOSIS [None]
  - VOMITING [None]
  - JAUNDICE [None]
  - NAUSEA [None]
  - HAEMATURIA [None]
  - BLOOD BILIRUBIN INCREASED [None]
  - BLOOD LACTATE DEHYDROGENASE INCREASED [None]
  - ERYTHROPHAGOCYTOSIS [None]
  - FATIGUE [None]
  - ANAEMIA HAEMOLYTIC AUTOIMMUNE [None]
  - RENAL FAILURE ACUTE [None]
